FAERS Safety Report 18292841 (Version 1)
Quarter: 2020Q3

REPORT INFORMATION
  Report Type: Spontaneous
  Country: US (occurrence: US)
  Receive Date: 20200922
  Receipt Date: 20200922
  Transmission Date: 20201103
  Serious: Yes (Life-Threatening, Hospitalization, Other)
  Sender: FDA-Public Use
  Company Number: US-AUROBINDO-AUR-APL-2020-048668

PATIENT
  Age: 59 Year
  Sex: Female

DRUGS (3)
  1. SILDENAFIL. [Suspect]
     Active Substance: SILDENAFIL
     Indication: PULMONARY HYPERTENSION
     Dosage: UNK
     Route: 065
  2. NITRIC OXIDE. [Suspect]
     Active Substance: NITRIC OXIDE
     Indication: PULMONARY HYPERTENSION
     Dosage: UNK
     Route: 065
  3. SILDENAFIL. [Suspect]
     Active Substance: SILDENAFIL
     Dosage: 40 MILLIGRAM, 3 TIMES A DAY (UPTITRATED TO)
     Route: 065

REACTIONS (7)
  - Pulmonary oedema [Recovered/Resolved]
  - Cardiac failure [Recovered/Resolved]
  - Pulmonary hypertension [Recovered/Resolved]
  - Dyspnoea [Recovered/Resolved]
  - Pulseless electrical activity [Recovered/Resolved]
  - Secretion discharge [Recovered/Resolved]
  - Increased ventricular preload [Recovered/Resolved]
